FAERS Safety Report 8105573-3 (Version None)
Quarter: 2012Q1

REPORT INFORMATION
  Report Type: 
  Country: None (occurrence: None)
  Receive Date: 20120201
  Receipt Date: 20120123
  Transmission Date: 20120608
  Serious: Yes (Hospitalization)
  Sender: FDA-Public Use
  Company Number: CZ-ROCHE-1030619

PATIENT
  Sex: Female

DRUGS (66)
  1. MABTHERA [Suspect]
     Route: 042
     Dates: start: 20110513
  2. PREDNISONE TAB [Suspect]
     Route: 042
     Dates: start: 20110513
  3. CYTARABINE [Suspect]
     Route: 042
     Dates: start: 20110607
  4. SANDONORM [Concomitant]
     Route: 048
  5. SANDONORM [Concomitant]
     Route: 048
     Dates: start: 20110504
  6. SPIRONOLACTONE [Concomitant]
     Route: 048
     Dates: start: 20110503
  7. FRAGMIN [Concomitant]
     Route: 058
     Dates: start: 20110408, end: 20110410
  8. PREDNISONE TAB [Suspect]
     Route: 048
     Dates: start: 20110422
  9. PREDNISONE TAB [Suspect]
     Route: 042
     Dates: start: 20110603
  10. NEULASTA [Suspect]
     Route: 058
     Dates: start: 20110608
  11. SANDONORM [Concomitant]
     Route: 048
     Dates: start: 20110526
  12. ORGAMETRIL [Concomitant]
     Route: 048
     Dates: end: 20110410
  13. ACYCLOVIR [Concomitant]
     Route: 048
     Dates: start: 20110502, end: 20110506
  14. MYCOMAX [Concomitant]
     Route: 048
     Dates: start: 20110412, end: 20110418
  15. SPIRONOLACTONE [Concomitant]
     Route: 048
     Dates: start: 20110315, end: 20110410
  16. ZOLPIDEM [Concomitant]
     Dosage: 5-10 MG DOSE
     Route: 048
     Dates: start: 20110325, end: 20110410
  17. DOXORUBICIN HCL [Suspect]
     Indication: DIFFUSE LARGE B-CELL LYMPHOMA
     Route: 042
     Dates: start: 20110401
  18. NEULASTA [Suspect]
     Indication: DIFFUSE LARGE B-CELL LYMPHOMA
     Route: 058
     Dates: start: 20110402
  19. ETOPOSIDE [Suspect]
     Indication: DIFFUSE LARGE B-CELL LYMPHOMA
     Route: 042
     Dates: start: 20110513
  20. CISPLATIN [Suspect]
     Indication: DIFFUSE LARGE B-CELL LYMPHOMA
     Route: 042
     Dates: start: 20110513
  21. CYTARABINE [Suspect]
     Indication: DIFFUSE LARGE B-CELL LYMPHOMA
     Route: 042
     Dates: start: 20110517
  22. METHOTREXATE [Suspect]
     Indication: DIFFUSE LARGE B-CELL LYMPHOMA
     Route: 037
     Dates: start: 20110513
  23. SANDONORM [Concomitant]
     Route: 048
     Dates: start: 20110412
  24. ACYCLOVIR [Concomitant]
     Route: 048
     Dates: start: 20110413, end: 20110501
  25. ACYCLOVIR [Concomitant]
     Route: 048
     Dates: start: 20110527
  26. KALNORMIN [Concomitant]
     Route: 048
     Dates: start: 20110414
  27. OMEPRAZOLE [Concomitant]
     Route: 048
     Dates: start: 20110503
  28. CYCLOPHOSPHAMIDE [Suspect]
     Route: 042
     Dates: start: 20110422
  29. VINCRISTINE [Suspect]
     Indication: DIFFUSE LARGE B-CELL LYMPHOMA
     Route: 042
     Dates: start: 20110401
  30. CISPLATIN [Suspect]
     Route: 042
     Dates: start: 20110603
  31. METHOTREXATE [Suspect]
     Route: 037
     Dates: start: 20110603
  32. ORGAMETRIL [Concomitant]
     Route: 048
     Dates: start: 20110412
  33. COTRIM [Concomitant]
     Route: 048
     Dates: start: 20110419
  34. DURAGESIC-100 [Concomitant]
     Route: 062
     Dates: start: 20110412
  35. DOXORUBICIN HCL [Suspect]
     Route: 042
     Dates: start: 20110422
  36. PREDNISONE TAB [Suspect]
     Indication: DIFFUSE LARGE B-CELL LYMPHOMA
     Route: 048
     Dates: start: 20110401
  37. FILGRASTIM [Suspect]
     Route: 058
     Dates: start: 20110505, end: 20110505
  38. ACYCLOVIR [Concomitant]
     Route: 048
     Dates: start: 20110311, end: 20110410
  39. OMEPRAZOLE [Concomitant]
     Route: 048
     Dates: start: 20110325, end: 20110410
  40. FRAGMIN [Concomitant]
     Route: 058
     Dates: start: 20110502, end: 20110503
  41. ENOXAPARIN SODIUM [Concomitant]
     Route: 058
     Dates: start: 20110411
  42. OMEPRAZOLE [Concomitant]
     Route: 048
     Dates: start: 20110523
  43. MABTHERA [Suspect]
     Indication: DIFFUSE LARGE B-CELL LYMPHOMA
     Route: 042
     Dates: start: 20110331
  44. MABTHERA [Suspect]
     Route: 042
     Dates: start: 20110422
  45. MABTHERA [Suspect]
     Route: 042
     Dates: start: 20110603
  46. NEULASTA [Suspect]
     Route: 058
     Dates: start: 20110518
  47. LORISTA [Concomitant]
     Route: 048
     Dates: end: 20110410
  48. LORISTA [Concomitant]
     Route: 048
     Dates: start: 20110412
  49. NOVALGIN [Concomitant]
     Route: 048
     Dates: start: 20110304, end: 20110410
  50. LYRICA [Concomitant]
     Route: 048
     Dates: start: 20110412, end: 20110413
  51. PROTHIADEN [Concomitant]
     Route: 048
     Dates: start: 20110311, end: 20110410
  52. ACYCLOVIR [Concomitant]
     Route: 048
     Dates: start: 20110507
  53. COTRIM [Concomitant]
     Route: 048
     Dates: start: 20110311, end: 20110410
  54. SPIRONOLACTONE [Concomitant]
     Route: 048
     Dates: start: 20110525
  55. ALLOPURINOL [Concomitant]
     Route: 048
     Dates: start: 20110523
  56. ETOPOSIDE [Suspect]
     Route: 042
     Dates: start: 20110603
  57. SPIRONOLACTONE [Concomitant]
     Dosage: 25-75MG PER DAY DEPENDING ON ODEMAS
     Route: 048
     Dates: start: 20110413
  58. ALLOPURINOL [Concomitant]
     Route: 048
     Dates: start: 20110325, end: 20110410
  59. FRAGMIN [Concomitant]
     Route: 058
     Dates: start: 20110506
  60. CYCLOPHOSPHAMIDE [Suspect]
     Indication: DIFFUSE LARGE B-CELL LYMPHOMA
     Route: 042
     Dates: start: 20110401
  61. FILGRASTIM [Suspect]
     Indication: DIFFUSE LARGE B-CELL LYMPHOMA
     Route: 058
     Dates: start: 20110424, end: 20110504
  62. LYRICA [Concomitant]
     Route: 048
     Dates: start: 20110310, end: 20110410
  63. PROTHIADEN [Concomitant]
     Route: 048
     Dates: start: 20110412
  64. ACYCLOVIR [Concomitant]
     Route: 048
     Dates: start: 20110523, end: 20110526
  65. KALNORMIN [Concomitant]
     Route: 048
     Dates: start: 20110402, end: 20110410
  66. HUMALOG [Concomitant]
     Dosage: 21-0-15 IU ACCORDING TO ACUTAL GLYCEMIA LEVEL
     Route: 058
     Dates: start: 20100101

REACTIONS (2)
  - DYSPNOEA EXERTIONAL [None]
  - FEBRILE NEUTROPENIA [None]
